FAERS Safety Report 4478941-9 (Version None)
Quarter: 2004Q4

REPORT INFORMATION
  Report Type: 
  Country: None (occurrence: None)
  Receive Date: 20041014
  Receipt Date: 20040930
  Transmission Date: 20050328
  Serious: Yes (Other)
  Sender: FDA-Public Use
  Company Number: 2004227525CA

PATIENT
  Age: 28 Year
  Sex: Female
  Weight: 68 kg

DRUGS (4)
  1. DEPO-PROVERA [Suspect]
     Indication: CONTRACEPTION
     Dosage: SEE IMAGE
     Route: 030
     Dates: start: 20010801, end: 20010801
  2. DEPO-PROVERA [Suspect]
     Indication: CONTRACEPTION
     Dosage: SEE IMAGE
     Route: 030
     Dates: start: 20040607, end: 20040607
  3. VALPROATE SODIUM [Suspect]
     Indication: MOOD SWINGS
     Dosage: 750 MG, QD, ORAL
     Route: 048
  4. TRAZODONE HCL [Suspect]
     Indication: INSOMNIA
     Dosage: 50 MG, QD, ORAL
     Route: 048

REACTIONS (5)
  - BACK PAIN [None]
  - DRUG INTERACTION [None]
  - DYSMENORRHOEA [None]
  - METRORRHAGIA [None]
  - PRECANCEROUS CELLS PRESENT [None]
